FAERS Safety Report 10428476 (Version 2)
Quarter: 2014Q3

REPORT INFORMATION
  Report Type: Report from Study
  Country: JP (occurrence: JP)
  Receive Date: 20140903
  Receipt Date: 20140905
  Transmission Date: 20150326
  Serious: Yes (Death, Hospitalization)
  Sender: FDA-Public Use
  Company Number: JP-EISAI INC-E2020-14463-CLI-JP

PATIENT
  Age: 79 Year
  Sex: Male

DRUGS (5)
  1. ARICEPT [Suspect]
     Active Substance: DONEPEZIL HYDROCHLORIDE
     Indication: DEMENTIA ALZHEIMER^S TYPE
     Dosage: DOSE UNKNOWN
     Route: 048
     Dates: start: 20140718, end: 20140825
  2. NICERGOLINE [Concomitant]
     Active Substance: NICERGOLINE
  3. CELECOX [Concomitant]
     Active Substance: CELECOXIB
  4. ALLOPURINOL. [Concomitant]
     Active Substance: ALLOPURINOL
  5. IRBETAN [Concomitant]
     Active Substance: IRBESARTAN

REACTIONS (2)
  - Septic shock [Fatal]
  - Spinal compression fracture [Not Recovered/Not Resolved]

NARRATIVE: CASE EVENT DATE: 20140813
